FAERS Safety Report 20726255 (Version 1)
Quarter: 2022Q2

REPORT INFORMATION
  Report Type: Spontaneous
  Country: US (occurrence: US)
  Receive Date: 20220419
  Receipt Date: 20220419
  Transmission Date: 20220720
  Serious: Yes (Death)
  Sender: FDA-Public Use
  Company Number: US-ELI_LILLY_AND_COMPANY-US202204008054

PATIENT
  Age: 83 Year
  Sex: Female
  Weight: 83.9 kg

DRUGS (4)
  1. ADCIRCA [Suspect]
     Active Substance: TADALAFIL
     Indication: Product used for unknown indication
     Dosage: UNK UNK, UNKNOWN
     Route: 065
  2. ORENITRAM [Suspect]
     Active Substance: TREPROSTINIL
     Indication: Pulmonary arterial hypertension
     Dosage: 0125 MG, TID
     Route: 048
     Dates: start: 20170113
  3. ORENITRAM [Suspect]
     Active Substance: TREPROSTINIL
     Dosage: 0125 MG, TID
     Route: 048
     Dates: start: 20170113
  4. ORENITRAM [Suspect]
     Active Substance: TREPROSTINIL
     Dosage: 0125 MG, TID
     Route: 048
     Dates: start: 20170113

REACTIONS (1)
  - Death [Fatal]

NARRATIVE: CASE EVENT DATE: 20220327
